FAERS Safety Report 9437732 (Version 5)
Quarter: 2016Q1

REPORT INFORMATION
  Report Type: Report from Study
  Country: BR (occurrence: BR)
  Receive Date: 20130802
  Receipt Date: 20160215
  Transmission Date: 20160526
  Serious: Yes (Death, Hospitalization, Other)
  Sender: FDA-Public Use
  Company Number: PHHY2013BR082741

PATIENT
  Age: 47 Year
  Sex: Male
  Weight: 82 kg

DRUGS (13)
  1. SANDOSTATIN LAR DEPOT [Suspect]
     Active Substance: OCTREOTIDE ACETATE
     Dosage: 30 MG, EVERY 15 DAYS
     Route: 065
  2. OMEPRAZOLE. [Concomitant]
     Active Substance: OMEPRAZOLE
     Indication: PRODUCT USED FOR UNKNOWN INDICATION
     Dosage: 4 DF, BID, 2 TABLETS IN MORNING/ 2 TABLETS AT NIGHT
     Route: 048
     Dates: start: 2008
  3. SANDOSTATIN LAR DEPOT [Suspect]
     Active Substance: OCTREOTIDE ACETATE
     Dosage: 30 MG, EVERY 20 DAYS
     Route: 065
     Dates: start: 2010
  4. METFORMIN [Concomitant]
     Active Substance: METFORMIN HYDROCHLORIDE
     Indication: PRODUCT USED FOR UNKNOWN INDICATION
     Dosage: 9 DF, QD
     Route: 048
     Dates: start: 2009
  5. SIMVASTATIN. [Concomitant]
     Active Substance: SIMVASTATIN
     Indication: PRODUCT USED FOR UNKNOWN INDICATION
     Dosage: 2 DF, QD
     Route: 065
  6. ENALAPRIL [Concomitant]
     Active Substance: ENALAPRIL
     Indication: PRODUCT USED FOR UNKNOWN INDICATION
     Dosage: 2 DF, QD
     Route: 048
     Dates: start: 2009
  7. CIPROFIBRATE [Concomitant]
     Active Substance: CIPROFIBRATE
     Indication: PRODUCT USED FOR UNKNOWN INDICATION
     Dosage: 1 DF, QD
     Route: 048
  8. SANDOSTATIN LAR DEPOT [Suspect]
     Active Substance: OCTREOTIDE ACETATE
     Dosage: 20 MG, QMO, EVERY 28 DAYS
     Route: 065
  9. HYDROCHLOROTHIAZIDE. [Concomitant]
     Active Substance: HYDROCHLOROTHIAZIDE
     Indication: PRODUCT USED FOR UNKNOWN INDICATION
     Dosage: 2 DF, QD
     Route: 048
     Dates: start: 2012
  10. GLICAZIDA [Concomitant]
     Active Substance: GLICLAZIDE
     Indication: PRODUCT USED FOR UNKNOWN INDICATION
     Dosage: 3 DF, QD
     Route: 048
  11. LEVOTHYROXINE. [Concomitant]
     Active Substance: LEVOTHYROXINE
     Indication: PRODUCT USED FOR UNKNOWN INDICATION
     Dosage: 100 MG, QD(2 TABLETS IN MORNING)
     Route: 048
  12. SANDOSTATIN LAR DEPOT [Suspect]
     Active Substance: OCTREOTIDE ACETATE
     Indication: NEUROENDOCRINE TUMOUR
     Dosage: 20 MG, QMO, EVERY 28 DAYS
     Route: 065
     Dates: start: 2008
  13. PURAN [Concomitant]
     Active Substance: LEVOTHYROXINE SODIUM
     Indication: PRODUCT USED FOR UNKNOWN INDICATION
     Dosage: UNK UKN, UNK
     Route: 065
     Dates: start: 2009

REACTIONS (18)
  - Thyroid cancer [Unknown]
  - Asthenia [Unknown]
  - Gastrinoma malignant [Recovering/Resolving]
  - Metastases to pituitary gland [Recovering/Resolving]
  - Metastases to bone [Fatal]
  - Dyspnoea [Unknown]
  - Prostate cancer [Unknown]
  - Injection site pain [Unknown]
  - Oesophageal obstruction [Unknown]
  - Lung neoplasm malignant [Fatal]
  - Oesophageal carcinoma [Recovering/Resolving]
  - Vitamin D decreased [Recovering/Resolving]
  - Pulmonary haemorrhage [Fatal]
  - Second primary malignancy [Unknown]
  - Metastases to pancreas [Recovering/Resolving]
  - Bone pain [Unknown]
  - Weight decreased [Unknown]
  - Inappropriate schedule of drug administration [Unknown]

NARRATIVE: CASE EVENT DATE: 201301
